FAERS Safety Report 10440921 (Version 1)
Quarter: 2014Q3

REPORT INFORMATION
  Report Type: Spontaneous
  Country: US (occurrence: None)
  Receive Date: 20140908
  Receipt Date: 20140908
  Transmission Date: 20150326
  Serious: Yes (Other)
  Sender: FDA-Public Use
  Company Number: None

PATIENT
  Age: 37 Year
  Sex: Female
  Weight: 80.29 kg

DRUGS (1)
  1. ADIPEX-P [Suspect]
     Active Substance: PHENTERMINE HYDROCHLORIDE
     Indication: WEIGHT CONTROL
     Route: 048
     Dates: start: 20140520, end: 20140906

REACTIONS (9)
  - Stress at work [None]
  - Burning sensation [None]
  - Drug ineffective [None]
  - Acne cystic [None]
  - Emotional distress [None]
  - Scar [None]
  - Pruritus [None]
  - Pain [None]
  - Acne [None]

NARRATIVE: CASE EVENT DATE: 20140906
